FAERS Safety Report 16698224 (Version 1)
Quarter: 2019Q3

REPORT INFORMATION
  Report Type: Spontaneous
  Country: DE (occurrence: DE)
  Receive Date: 20190813
  Receipt Date: 20190813
  Transmission Date: 20191004
  Serious: Yes (Other)
  Sender: FDA-Public Use
  Company Number: DE-PROVELL PHARMACEUTICALS-2073090

PATIENT
  Sex: Female

DRUGS (3)
  1. EUTHYROX [Suspect]
     Active Substance: LEVOTHYROXINE SODIUM
     Indication: PRODUCT USED FOR UNKNOWN INDICATION
  2. BELOC ZOK [Concomitant]
     Active Substance: METOPROLOL SUCCINATE
  3. EUTHYROX [Suspect]
     Active Substance: LEVOTHYROXINE SODIUM
     Dates: start: 201906

REACTIONS (6)
  - Product taste abnormal [None]
  - Musculoskeletal discomfort [None]
  - Balance disorder [None]
  - Lung neoplasm [None]
  - Affective disorder [None]
  - Feeling abnormal [None]
